FAERS Safety Report 16610494 (Version 1)
Quarter: 2019Q3

REPORT INFORMATION
  Report Type: Spontaneous
  Country: US (occurrence: US)
  Receive Date: 20190722
  Receipt Date: 20190722
  Transmission Date: 20191004
  Serious: No
  Sender: FDA-Public Use
  Company Number: US-OSMOTICA_PHARMACEUTICAL_US_LLC-POI0573201800155

PATIENT
  Age: 45 Year
  Sex: Female
  Weight: 50.39 kg

DRUGS (2)
  1. PROMETRIUM [Concomitant]
     Active Substance: PROGESTERONE
     Indication: PRODUCT USED FOR UNKNOWN INDICATION
  2. DIVIGEL [Suspect]
     Active Substance: ESTRADIOL
     Indication: PRODUCT USED FOR UNKNOWN INDICATION
     Dates: start: 20180424

REACTIONS (3)
  - Feeling abnormal [Unknown]
  - Breast tenderness [Unknown]
  - Weight increased [Unknown]

NARRATIVE: CASE EVENT DATE: 2018
